FAERS Safety Report 7962450-6 (Version None)
Quarter: 2011Q4

REPORT INFORMATION
  Report Type: 
  Country: None (occurrence: None)
  Receive Date: 20111207
  Receipt Date: 20111202
  Transmission Date: 20120403
  Serious: Yes (Other)
  Sender: FDA-Public Use
  Company Number: CL-PFIZER INC-2011297749

PATIENT
  Sex: Female

DRUGS (6)
  1. RAVOTRIL [Concomitant]
     Dosage: 0.7 MG, 1X/DAY
     Route: 048
     Dates: start: 20110101
  2. SERTRALINE HYDROCHLORIDE [Suspect]
     Dosage: 50 MG, 1X/DAY
  3. SERTRALINE HYDROCHLORIDE [Suspect]
     Dosage: 50 MG, 1X/DAY
  4. SERTRALINE HYDROCHLORIDE [Suspect]
     Dosage: 75 MG
     Dates: start: 20091111
  5. SERTRALINE HYDROCHLORIDE [Suspect]
     Dosage: 100 MG, 1X/DAY
  6. RAVOTRIL [Concomitant]
     Dosage: 2 DROPS PER NIGHT

REACTIONS (1)
  - PNEUMONIA STREPTOCOCCAL [None]
